FAERS Safety Report 6722001-0 (Version None)
Quarter: 2010Q2

REPORT INFORMATION
  Report Type: 
  Country: None (occurrence: None)
  Receive Date: 20100512
  Receipt Date: 20100506
  Transmission Date: 20101027
  Serious: Yes (Other)
  Sender: FDA-Public Use
  Company Number: B0652386A

PATIENT
  Sex: Female

DRUGS (2)
  1. CLAMOX [Suspect]
     Indication: TOOTH INFECTION
     Route: 048
     Dates: start: 20100429
  2. ORAL CONTRACEPTION [Concomitant]
     Indication: DRUG USE FOR UNKNOWN INDICATION
     Route: 048

REACTIONS (1)
  - VAGINAL HAEMORRHAGE [None]
